FAERS Safety Report 21300667 (Version 1)
Quarter: 2022Q3

REPORT INFORMATION
  Report Type: Spontaneous
  Country: CA (occurrence: CA)
  Receive Date: 20220907
  Receipt Date: 20220907
  Transmission Date: 20221027
  Serious: Yes (Other)
  Sender: FDA-Public Use
  Company Number: CA-PFIZER INC-202201122874

PATIENT
  Age: 32 Year
  Sex: Male

DRUGS (4)
  1. METHOTREXATE SODIUM [Suspect]
     Active Substance: METHOTREXATE SODIUM
     Dosage: 25 MG WEEKLY
     Dates: start: 202004
  2. AZATHIOPRINE [Concomitant]
     Active Substance: AZATHIOPRINE
     Dosage: 150 MG, DAILY
     Dates: start: 202112, end: 202203
  3. PREDNISONE [Concomitant]
     Active Substance: PREDNISONE
  4. FOLIC ACID [Concomitant]
     Active Substance: FOLIC ACID

REACTIONS (8)
  - Deafness [Not Recovered/Not Resolved]
  - Scleritis [Not Recovered/Not Resolved]
  - Blindness [Unknown]
  - Necrosis [Unknown]
  - Treatment failure [Unknown]
  - Condition aggravated [Not Recovered/Not Resolved]
  - Skin ulcer [Unknown]
  - C-reactive protein increased [Unknown]
